FAERS Safety Report 6760483-9 (Version None)
Quarter: 2010Q2

REPORT INFORMATION
  Report Type: 
  Country: None (occurrence: None)
  Receive Date: 20100602
  Receipt Date: 20091123
  Transmission Date: 20101027
  Serious: Yes (Life-Threatening)
  Sender: FDA-Public Use
  Company Number: WAES 0911USA04354

PATIENT
  Age: 35 Year
  Sex: Female
  Weight: 66.6788 kg

DRUGS (12)
  1. EMEND [Suspect]
     Indication: PREMEDICATION
     Dosage: 125 MG/1X/PO ; 80 MG/1X/PO
     Route: 048
     Dates: start: 20091120, end: 20091120
  2. EMEND [Suspect]
     Indication: PREMEDICATION
     Dosage: 125 MG/1X/PO ; 80 MG/1X/PO
     Route: 048
     Dates: start: 20091121, end: 20091121
  3. ADRIAMYCIN PFS [Suspect]
     Indication: CHEMOTHERAPY
     Dosage: 109 MG/M[2]/DAILY/IV
     Route: 042
     Dates: start: 20091120, end: 20091120
  4. CELEXA [Concomitant]
  5. CYTOXAN [Concomitant]
  6. DECADRON [Concomitant]
  7. KLONOPIN [Concomitant]
  8. LAMICTAL [Concomitant]
  9. NEURONTIN [Concomitant]
  10. ZOFRAN [Concomitant]
  11. LORAZEPAM [Concomitant]
  12. VITAMINS (UNSPECIFIED) [Concomitant]

REACTIONS (7)
  - DYSPHAGIA [None]
  - DYSPNOEA [None]
  - ERYTHEMA [None]
  - FLUSHING [None]
  - INAPPROPRIATE SCHEDULE OF DRUG ADMINISTRATION [None]
  - PRURITUS [None]
  - SENSATION OF FOREIGN BODY [None]
